FAERS Safety Report 5662450-5 (Version None)
Quarter: 2008Q1

REPORT INFORMATION
  Report Type: 
  Country: None (occurrence: None)
  Receive Date: 20080313
  Receipt Date: 20080303
  Transmission Date: 20080703
  Serious: Yes (Other)
  Sender: FDA-Public Use
  Company Number: PHHY2008AU01761

PATIENT
  Age: 8 Year
  Sex: Female

DRUGS (1)
  1. EXJADE [Suspect]
     Indication: IRON OVERLOAD
     Dosage: 25 MG/KG/DAY
     Route: 048
     Dates: start: 20070401

REACTIONS (7)
  - AMINOACIDURIA [None]
  - HYPOKALAEMIA [None]
  - HYPOPHOSPHATAEMIA [None]
  - PROTEINURIA [None]
  - RENAL TUBULAR DISORDER [None]
  - URINE AMINO ACID LEVEL INCREASED [None]
  - URINE PHOSPHATE INCREASED [None]
